FAERS Safety Report 6200384-8 (Version None)
Quarter: 2009Q2

REPORT INFORMATION
  Report Type: 
  Country: None (occurrence: None)
  Receive Date: 20090522
  Receipt Date: 20090522
  Transmission Date: 20091009
  Serious: Yes (Other)
  Sender: FDA-Public Use
  Company Number: US-PFIZER INC-2009195856

PATIENT
  Sex: Female
  Weight: 115.19 kg

DRUGS (5)
  1. CELEBREX [Suspect]
     Indication: TENDONITIS
     Dates: start: 20080101, end: 20080101
  2. TENORETIC 100 [Concomitant]
  3. DIOVAN [Concomitant]
  4. RED YEAST RICE [Concomitant]
  5. PRILOSEC [Concomitant]

REACTIONS (5)
  - MULTIPLE MYELOMA [None]
  - NEPHROTIC SYNDROME [None]
  - OEDEMA [None]
  - PLASMA CELLS INCREASED [None]
  - PROTEINURIA [None]
